FAERS Safety Report 12632222 (Version 2)
Quarter: 2016Q3

REPORT INFORMATION
  Report Type: Spontaneous
  Country: US (occurrence: US)
  Receive Date: 20160808
  Receipt Date: 20160808
  Transmission Date: 20161109
  Serious: No
  Sender: FDA-Public Use
  Company Number: US-BEH-2016062190

PATIENT
  Sex: Female
  Weight: 108 kg

DRUGS (37)
  1. ACETAMINOPHEN. [Concomitant]
     Active Substance: ACETAMINOPHEN
  2. PROBIOTIC [Concomitant]
     Active Substance: PROBIOTICS NOS
  3. COLCHICINE. [Concomitant]
     Active Substance: COLCHICINE
  4. MAGNESIUM [Concomitant]
     Active Substance: MAGNESIUM
  5. OXYCODONE [Concomitant]
     Active Substance: OXYCODONE
  6. DIPHENHYDRAMINE. [Concomitant]
     Active Substance: DIPHENHYDRAMINE
  7. COUMADIN [Concomitant]
     Active Substance: WARFARIN SODIUM
  8. HIZENTRA [Suspect]
     Active Substance: HUMAN IMMUNOGLOBULIN G
     Route: 058
  9. DOXYCYCLINE. [Concomitant]
     Active Substance: DOXYCYCLINE
  10. SPIRONOLACTONE. [Concomitant]
     Active Substance: SPIRONOLACTONE
  11. EPIPEN [Concomitant]
     Active Substance: EPINEPHRINE
  12. PROTONIX [Concomitant]
     Active Substance: PANTOPRAZOLE SODIUM
  13. CYANOCOBALAMIN. [Concomitant]
     Active Substance: CYANOCOBALAMIN
  14. ONE A DAY [Concomitant]
  15. MULTI B PLUS [Concomitant]
  16. HYDROCODONE [Concomitant]
     Active Substance: HYDROCODONE
  17. PRILOSEC [Concomitant]
     Active Substance: OMEPRAZOLE MAGNESIUM
  18. NOVOLOG [Concomitant]
     Active Substance: INSULIN ASPART
  19. ALLOPURINOL. [Concomitant]
     Active Substance: ALLOPURINOL
  20. LEVEMIR [Concomitant]
     Active Substance: INSULIN DETEMIR
  21. ALBUTEROL. [Concomitant]
     Active Substance: ALBUTEROL
  22. VITAMIN D [Concomitant]
     Active Substance: CHOLECALCIFEROL
  23. PREDNISONE. [Concomitant]
     Active Substance: PREDNISONE
  24. LISINOPRIL. [Concomitant]
     Active Substance: LISINOPRIL
  25. SYNTHROID [Concomitant]
     Active Substance: LEVOTHYROXINE SODIUM
  26. HIZENTRA [Suspect]
     Active Substance: HUMAN IMMUNOGLOBULIN G
     Route: 058
  27. ATENOLOL. [Concomitant]
     Active Substance: ATENOLOL
  28. ARIMIDEX [Concomitant]
     Active Substance: ANASTROZOLE
  29. LIOTHYRONINE [Concomitant]
     Active Substance: LIOTHYRONINE
  30. LMX [Concomitant]
     Active Substance: LIDOCAINE
  31. CYCLOBENZAPRINE [Concomitant]
     Active Substance: CYCLOBENZAPRINE
  32. KEFLEX [Concomitant]
     Active Substance: CEPHALEXIN
  33. DIFULCAN [Concomitant]
  34. GUAIFENESIN. [Concomitant]
     Active Substance: GUAIFENESIN
  35. CYMBALTA [Concomitant]
     Active Substance: DULOXETINE HYDROCHLORIDE
  36. HIZENTRA [Suspect]
     Active Substance: HUMAN IMMUNOGLOBULIN G
     Indication: IMMUNODEFICIENCY COMMON VARIABLE
     Route: 058
     Dates: start: 20100921
  37. CELEXA [Concomitant]
     Active Substance: CITALOPRAM HYDROBROMIDE

REACTIONS (1)
  - Sinusitis [Unknown]
